FAERS Safety Report 13350851 (Version 2)
Quarter: 2017Q2

REPORT INFORMATION
  Report Type: Spontaneous
  Country: FR (occurrence: FR)
  Receive Date: 20170320
  Receipt Date: 20170405
  Transmission Date: 20170830
  Serious: Yes (Hospitalization)
  Sender: FDA-Public Use
  Company Number: FR-JNJFOC-20170315492

PATIENT
  Age: 41 Year
  Sex: Male
  Weight: 67.5 kg

DRUGS (8)
  1. RISPERDAL [Suspect]
     Active Substance: RISPERIDONE
     Indication: SCHIZOPHRENIA
     Dosage: IN EVENING
     Route: 048
     Dates: start: 20170209
  2. LOXAPAC [Suspect]
     Active Substance: LOXAPINE SUCCINATE
     Indication: SCHIZOPHRENIA
     Dosage: 75 DROPS IN THE MORNING, NOON AND EVENING AND 100 DROPS AT BEDTIME (DOSE DECREASED)
     Route: 048
     Dates: start: 20170208
  3. IMOVANE [Concomitant]
     Active Substance: ZOPICLONE
     Route: 065
  4. MOVICOL [Concomitant]
     Active Substance: POLYETHYLENE GLYCOL 3350\POTASSIUM CHLORIDE\SODIUM BICARBONATE\SODIUM CHLORIDE
     Route: 065
  5. RISPERDAL [Suspect]
     Active Substance: RISPERIDONE
     Indication: SCHIZOPHRENIA
     Dosage: IN THE EVENING
     Route: 048
     Dates: end: 20170209
  6. VALIUM [Suspect]
     Active Substance: DIAZEPAM
     Indication: SCHIZOPHRENIA
     Dosage: IN MORNING, NOON, EVENING AND AT BEDTIME
     Route: 048
     Dates: end: 20170208
  7. VALIUM [Suspect]
     Active Substance: DIAZEPAM
     Indication: SCHIZOPHRENIA
     Dosage: 20 DROPS IN MORNING, NOON AND EVENING AND 30 DROPS AT BEDTIME (DOSE DECREASED)
     Route: 048
     Dates: start: 20170208
  8. LOXAPAC [Suspect]
     Active Substance: LOXAPINE SUCCINATE
     Indication: SCHIZOPHRENIA
     Dosage: MORNING, NOON, EVENING AND AT BEDTIME
     Route: 048
     Dates: end: 20170208

REACTIONS (5)
  - Altered state of consciousness [Recovered/Resolved]
  - Miosis [Recovered/Resolved]
  - Hypotonia [Recovered/Resolved]
  - Psychotic disorder [Recovered/Resolved]
  - Somnolence [Recovered/Resolved]

NARRATIVE: CASE EVENT DATE: 20170206
